FAERS Safety Report 16208469 (Version 1)
Quarter: 2019Q2

REPORT INFORMATION
  Report Type: Spontaneous
  Country: CN (occurrence: CN)
  Receive Date: 20190417
  Receipt Date: 20190417
  Transmission Date: 20190711
  Serious: Yes (Other)
  Sender: FDA-Public Use
  Company Number: CN-SA-2019SA106487

PATIENT
  Age: 66 Year
  Sex: Male

DRUGS (2)
  1. DOCETAXEL. [Suspect]
     Active Substance: DOCETAXEL
     Indication: HYPOPHARYNGEAL CANCER
     Dosage: FOUR CYCLE CHEMOTHERAPY WITH TP REGIMEN
  2. NEDAPLATIN [Suspect]
     Active Substance: NEDAPLATIN
     Indication: HYPOPHARYNGEAL CANCER
     Dosage: FOUR CYCLE CHEMOTHERAPY WITH TP REGIMEN

REACTIONS (4)
  - Leukopenia [Unknown]
  - Vomiting [Unknown]
  - Nausea [Unknown]
  - Metastasis [Unknown]
